FAERS Safety Report 24255589 (Version 2)
Quarter: 2025Q3

REPORT INFORMATION
  Report Type: Spontaneous
  Country: US (occurrence: US)
  Receive Date: 20240827
  Receipt Date: 20250818
  Transmission Date: 20251021
  Serious: No
  Sender: SANOFI AVENTIS
  Company Number: US-SA-SAC20240820000145

PATIENT
  Age: 30 Year
  Sex: Male

DRUGS (1)
  1. DUPIXENT [Suspect]
     Active Substance: DUPILUMAB
     Indication: Dermatitis atopic
     Dosage: 300 MG, QOW
     Route: 058
     Dates: start: 202405

REACTIONS (2)
  - Pruritus [Unknown]
  - Intercepted product storage error [Unknown]

NARRATIVE: CASE EVENT DATE: 20240801
